FAERS Safety Report 25435651 (Version 1)
Quarter: 2025Q2

REPORT INFORMATION
  Report Type: Spontaneous
  Country: TW (occurrence: TW)
  Receive Date: 20250613
  Receipt Date: 20250613
  Transmission Date: 20250717
  Serious: Yes (Death)
  Sender: PFIZER
  Company Number: TW-PFIZER INC-PV202500070768

PATIENT
  Age: 48 Year
  Sex: Male
  Weight: 84 kg

DRUGS (8)
  1. MEROPENEM [Suspect]
     Active Substance: MEROPENEM
     Indication: Pyrexia
     Dosage: 250 MG, 2X/DAY (EVERY 12 HOURS)
     Route: 042
     Dates: start: 20250518, end: 20250529
  2. TARGOCID [Suspect]
     Active Substance: TEICOPLANIN
     Indication: Pyrexia
     Dosage: 600 MG, 2X/DAY (EVERY 12 HOURS) FOR 3 DOSES
     Route: 042
     Dates: start: 20250518
  3. TARGOCID [Suspect]
     Active Substance: TEICOPLANIN
     Dosage: 500 MG, 1X/DAY
     Route: 042
     Dates: end: 20250529
  4. PIPERACILLIN SODIUM\TAZOBACTAM SODIUM [Concomitant]
     Active Substance: PIPERACILLIN SODIUM\TAZOBACTAM SODIUM
     Dates: start: 20250516
  5. ERAXIS [Concomitant]
     Active Substance: ANIDULAFUNGIN
     Indication: Infection prophylaxis
     Dates: start: 20250519
  6. ERAXIS [Concomitant]
     Active Substance: ANIDULAFUNGIN
     Dosage: 100 MG, 1X/DAY
  7. DERMALEAN [Concomitant]
     Dates: start: 20250519
  8. LEVOPHED [Concomitant]
     Active Substance: NOREPINEPHRINE BITARTRATE
     Dates: start: 20250521

REACTIONS (5)
  - Erythema [Fatal]
  - Skin swelling [Fatal]
  - Rash [Fatal]
  - Stevens-Johnson syndrome [Fatal]
  - Hypotension [Fatal]

NARRATIVE: CASE EVENT DATE: 20250529
